FAERS Safety Report 20439424 (Version 1)
Quarter: 2022Q1

REPORT INFORMATION
  Report Type: Spontaneous
  Country: US (occurrence: None)
  Receive Date: 20220204
  Receipt Date: 20220204
  Transmission Date: 20220423
  Serious: Yes (Hospitalization)
  Sender: FDA-Public Use
  Company Number: None

PATIENT
  Age: 37 Year
  Sex: Female

DRUGS (2)
  1. PARAGARD T 380A [Suspect]
     Active Substance: COPPER
     Indication: Product used for unknown indication
     Dates: start: 20120518, end: 20211012
  2. VITAMINS [Concomitant]
     Active Substance: VITAMINS

REACTIONS (3)
  - Device breakage [None]
  - Embedded device [None]
  - Complication of device removal [None]

NARRATIVE: CASE EVENT DATE: 20211012
